FAERS Safety Report 5345954-4 (Version None)
Quarter: 2007Q2

REPORT INFORMATION
  Report Type: 
  Country: None (occurrence: None)
  Receive Date: 20070605
  Receipt Date: 20070601
  Transmission Date: 20071010
  Serious: Yes (Other)
  Sender: FDA-Public Use
  Company Number: B0473828A

PATIENT
  Age: 69 Year
  Sex: Male
  Weight: 63 kg

DRUGS (8)
  1. REQUIP [Suspect]
     Indication: PARKINSON'S DISEASE
     Dosage: 24MG PER DAY
     Route: 048
     Dates: start: 20000101
  2. NEUPRO [Suspect]
     Indication: PARKINSON'S DISEASE
     Dosage: 2MG PER DAY
     Route: 062
     Dates: start: 20070212
  3. SINEMET [Suspect]
     Indication: PARKINSON'S DISEASE
     Dosage: 400MG PER DAY
     Route: 048
     Dates: start: 20000101
  4. MADOPAR [Suspect]
     Indication: PARKINSON'S DISEASE
     Dosage: 1.1G PER DAY
     Route: 048
     Dates: start: 20000101
  5. LEXATIN [Suspect]
     Indication: INSOMNIA
     Dosage: 1.5MG PER DAY
     Route: 048
     Dates: start: 20000101
  6. CESPLON [Concomitant]
     Indication: ESSENTIAL HYPERTENSION
     Dosage: 1.2MG PER DAY
     Route: 048
     Dates: start: 20000101
  7. ADIRO [Concomitant]
     Indication: DRUG USE FOR UNKNOWN INDICATION
     Dosage: 100MG PER DAY
     Route: 048
     Dates: start: 20000101
  8. MOTILIUM [Concomitant]
     Indication: DRUG USE FOR UNKNOWN INDICATION
     Dosage: 20MG PER DAY
     Route: 048
     Dates: start: 20000101

REACTIONS (4)
  - DRUG INTERACTION [None]
  - FALL [None]
  - SOMNOLENCE [None]
  - SUDDEN ONSET OF SLEEP [None]
